FAERS Safety Report 9367070 (Version 3)
Quarter: 2013Q3

REPORT INFORMATION
  Report Type: Spontaneous
  Country: DE (occurrence: DE)
  Receive Date: 20130625
  Receipt Date: 20130711
  Transmission Date: 20140515
  Serious: Yes (Hospitalization)
  Sender: FDA-Public Use
  Company Number: DE-EISAI INC-E2007-01218-SPO-DE

PATIENT
  Age: 43 Year
  Sex: Female

DRUGS (6)
  1. FYCOMPA (PERAMPANEL) [Suspect]
     Indication: PARTIAL SEIZURES
     Route: 048
     Dates: start: 2013, end: 20130616
  2. FYCOMPA (PERAMPANEL) [Suspect]
     Route: 048
     Dates: start: 20130621, end: 20130623
  3. FYCOMPA (PERAMPANEL) [Suspect]
     Route: 048
     Dates: start: 20130624, end: 20130701
  4. FYCOMPA (PERAMPANEL) [Suspect]
     Route: 048
     Dates: start: 20130702
  5. OXCARBAZEPINE [Concomitant]
     Indication: PARTIAL SEIZURES
     Route: 048
     Dates: start: 2013, end: 20130616
  6. PARACETAMOL [Concomitant]
     Dosage: 1500 MG DAILY
     Route: 048

REACTIONS (5)
  - Sedation [Recovered/Resolved]
  - Confusional state [Recovered/Resolved]
  - Malaise [Recovered/Resolved]
  - Diarrhoea [Recovered/Resolved]
  - Off label use [Recovered/Resolved]
